FAERS Safety Report 6110860-4 (Version None)
Quarter: 2009Q1

REPORT INFORMATION
  Report Type: 
  Country: None (occurrence: None)
  Receive Date: 20090306
  Receipt Date: 20090303
  Transmission Date: 20090719
  Serious: Yes (Hospitalization, Other)
  Sender: FDA-Public Use
  Company Number: 2009SP000752

PATIENT
  Age: 53 Year
  Sex: Female

DRUGS (3)
  1. MIRALAX [Suspect]
     Indication: DRUG USE FOR UNKNOWN INDICATION
     Dosage: PO
     Route: 048
  2. LISINOPRIL [Concomitant]
  3. XANAX [Concomitant]

REACTIONS (3)
  - MALAISE [None]
  - NAUSEA [None]
  - RETCHING [None]
